FAERS Safety Report 7861712-0 (Version None)
Quarter: 2011Q4

REPORT INFORMATION
  Report Type: 
  Country: None (occurrence: None)
  Receive Date: 20111027
  Receipt Date: 20111021
  Transmission Date: 20120403
  Serious: Yes (Hospitalization)
  Sender: FDA-Public Use
  Company Number: JP-MERCK-1110USA01000

PATIENT
  Age: 78 Year
  Sex: Female
  Weight: 55 kg

DRUGS (6)
  1. JANUVIA [Suspect]
     Dosage: DOSAGE IS UNCERTAIN DURING A DAY
     Route: 048
     Dates: start: 20111019
  2. JANUVIA [Suspect]
     Indication: DIABETES MELLITUS
     Dosage: DOSAGE IS UNCERTAIN DURING A DAY
     Route: 048
     Dates: start: 20110808, end: 20111005
  3. LIPITOR [Concomitant]
     Route: 048
     Dates: start: 20110518, end: 20111005
  4. EURODIN [Concomitant]
     Route: 048
     Dates: start: 20100518, end: 20111005
  5. ASPIRIN [Concomitant]
     Route: 048
     Dates: start: 20100518, end: 20111005
  6. LASIX [Concomitant]
     Route: 048
     Dates: start: 20100518, end: 20111005

REACTIONS (1)
  - HYPERGLYCAEMIA [None]
